FAERS Safety Report 17540511 (Version 2)
Quarter: 2020Q1

REPORT INFORMATION
  Report Type: Spontaneous
  Country: US (occurrence: US)
  Receive Date: 20200313
  Receipt Date: 20200316
  Transmission Date: 20200409
  Serious: Yes (Hospitalization, Other)
  Sender: FDA-Public Use
  Company Number: US-PFIZER INC-2020111357

PATIENT
  Age: 70 Year
  Sex: Female
  Weight: 90.72 kg

DRUGS (1)
  1. IBRANCE [Suspect]
     Active Substance: PALBOCICLIB
     Indication: BREAST CANCER RECURRENT
     Dosage: UNK, CYCLIC (UNKNOWN ONCE A DAY BY MOUTH FOR 21 DAYS, THEN 7 DAYS OFF)
     Route: 048
     Dates: start: 201908, end: 20200305

REACTIONS (4)
  - Dyspnoea [Unknown]
  - Neoplasm progression [Unknown]
  - Pleural effusion [Unknown]
  - Pneumonia [Unknown]
